FAERS Safety Report 16364457 (Version 1)
Quarter: 2019Q2

REPORT INFORMATION
  Report Type: Spontaneous
  Country: CN (occurrence: CN)
  Receive Date: 20190528
  Receipt Date: 20190528
  Transmission Date: 20190711
  Serious: Yes (Hospitalization)
  Sender: FDA-Public Use
  Company Number: CN-BAXTER-2019BAX010261

PATIENT
  Age: 46 Year
  Sex: Male
  Weight: 75 kg

DRUGS (15)
  1. MABTHERA [Suspect]
     Active Substance: RITUXIMAB
     Dosage: RITUXIMAB 0.1 G +0.9% NS 100 ML
     Route: 041
     Dates: start: 20190430, end: 20190430
  2. SODIUM CHLORIDE. [Suspect]
     Active Substance: SODIUM CHLORIDE
     Dosage: EPIRUBICIN 130 MG + 0.9% NS 100 ML
     Route: 041
     Dates: start: 20190501, end: 20190501
  3. VINDESINE SULFATE [Suspect]
     Active Substance: VINDESINE SULFATE
     Indication: DIFFUSE LARGE B-CELL LYMPHOMA
     Dosage: VINDESINE SULFATE 4MG + 0.9% NS 20ML
     Route: 041
     Dates: start: 20190501, end: 20190501
  4. 0.9% SODIUM CHLORIDE INJECTION [Suspect]
     Active Substance: SODIUM CHLORIDE
     Indication: MEDICATION DILUTION
     Dosage: RITUXIMAB 0.1G +0.9% NS 100ML
     Route: 041
     Dates: start: 20190430, end: 20190430
  5. 0.9% SODIUM CHLORIDE INJECTION [Suspect]
     Active Substance: SODIUM CHLORIDE
     Dosage: RITUXIMAB 0.1G +0.9% NS 100ML
     Route: 041
     Dates: start: 20190430, end: 20190430
  6. SODIUM CHLORIDE. [Suspect]
     Active Substance: SODIUM CHLORIDE
     Indication: MEDICATION DILUTION
     Dosage: VINDESINE SULFATE 4MG + 0.9% NS 20 ML
     Route: 041
     Dates: start: 20190501, end: 20190501
  7. PREDNISONE ACETATE [Suspect]
     Active Substance: PREDNISONE ACETATE
     Indication: DIFFUSE LARGE B-CELL LYMPHOMA
     Dosage: DOSAGE FORM: TABLET; TID
     Route: 048
     Dates: start: 20190501, end: 20190505
  8. 0.9% SODIUM CHLORIDE INJECTION [Suspect]
     Active Substance: SODIUM CHLORIDE
     Dosage: RITUXIMAB 0.5 G +0.9% NS 500ML
     Route: 041
     Dates: start: 20190430, end: 20190430
  9. SODIUM CHLORIDE. [Suspect]
     Active Substance: SODIUM CHLORIDE
     Indication: MEDICATION DILUTION
     Dosage: ETOPOSIDE0.15 G + 0.9% NS 1000 ML, ON D1-3
     Route: 041
     Dates: start: 20190501, end: 20190503
  10. ENDOXAN [Suspect]
     Active Substance: CYCLOPHOSPHAMIDE
     Indication: DIFFUSE LARGE B-CELL LYMPHOMA
     Dosage: CYCLOPHOSPHAMIDE1.3 G + 0.9% NS 250 ML
     Route: 041
     Dates: start: 20190501, end: 20190501
  11. 0.9% SODIUM CHLORIDE INJECTION [Suspect]
     Active Substance: SODIUM CHLORIDE
     Dosage: CYCLOPHOSPHAMIDE1.3 G + 0.9% NS 250 ML
     Route: 041
     Dates: start: 20190501, end: 20190501
  12. ETOPOSIDE. [Suspect]
     Active Substance: ETOPOSIDE
     Indication: DIFFUSE LARGE B-CELL LYMPHOMA
     Dosage: ETOPOSIDE 0.15 G + 0.9% NS 1000 ML
     Route: 041
     Dates: start: 20190501, end: 20190503
  13. MABTHERA [Suspect]
     Active Substance: RITUXIMAB
     Indication: DIFFUSE LARGE B-CELL LYMPHOMA
     Dosage: RITUXIMAB 0.1 G +0.9% NS 100 ML
     Route: 041
     Dates: start: 20190430, end: 20190430
  14. MABTHERA [Suspect]
     Active Substance: RITUXIMAB
     Dosage: RITUXIMAB 0.5 G + 0.9% NS 500 ML
     Route: 041
     Dates: start: 20190430, end: 20190430
  15. PHARMORUBICIN RD [Suspect]
     Active Substance: EPIRUBICIN
     Indication: DIFFUSE LARGE B-CELL LYMPHOMA
     Dosage: EPIRUBICIN 130 MG + 0.9% NS 100 ML
     Route: 041
     Dates: start: 20190501, end: 20190501

REACTIONS (3)
  - Bone marrow failure [Unknown]
  - Neutropenia [Recovering/Resolving]
  - Leukopenia [Recovering/Resolving]

NARRATIVE: CASE EVENT DATE: 20190510
